FAERS Safety Report 13055828 (Version 2)
Quarter: 2017Q1

REPORT INFORMATION
  Report Type: Spontaneous
  Country: CA (occurrence: CA)
  Receive Date: 20161222
  Receipt Date: 20170130
  Transmission Date: 20170428
  Serious: Yes (Death, Hospitalization)
  Sender: FDA-Public Use
  Company Number: CA-CELGENEUS-CAN-2016123324

PATIENT
  Age: 66 Year
  Sex: Female

DRUGS (2)
  1. THALOMID [Suspect]
     Active Substance: THALIDOMIDE
     Dosage: 200MG
     Route: 048
     Dates: start: 20161230
  2. THALOMID [Suspect]
     Active Substance: THALIDOMIDE
     Indication: PRODUCT USED FOR UNKNOWN INDICATION
     Dosage: 200MG
     Route: 048
     Dates: start: 20161120, end: 20161202

REACTIONS (2)
  - Respiratory failure [Not Recovered/Not Resolved]
  - Death [Fatal]

NARRATIVE: CASE EVENT DATE: 20161202
